FAERS Safety Report 20319024 (Version 1)
Quarter: 2022Q1

REPORT INFORMATION
  Report Type: Other
  Country: AT (occurrence: None)
  Receive Date: 20220110
  Receipt Date: 20220110
  Transmission Date: 20220423
  Serious: Yes (Death, Hospitalization)
  Sender: FDA-Public Use
  Company Number: AT-ROCHE-2975425

PATIENT

DRUGS (3)
  1. RITUXIMAB [Suspect]
     Active Substance: RITUXIMAB
     Indication: Product used for unknown indication
     Route: 065
  2. OCRELIZUMAB [Suspect]
     Active Substance: OCRELIZUMAB
     Indication: Product used for unknown indication
     Route: 065
  3. MYCOPHENOLATE MOFETIL [Suspect]
     Active Substance: MYCOPHENOLATE MOFETIL
     Indication: Product used for unknown indication
     Route: 065

REACTIONS (8)
  - Haematological malignancy [Fatal]
  - Fracture [Fatal]
  - Vaccination failure [Unknown]
  - Drug interaction [Unknown]
  - Injection site pain [Unknown]
  - Headache [Unknown]
  - Pyrexia [Unknown]
  - Fatigue [Unknown]
